FAERS Safety Report 8006737-X (Version None)
Quarter: 2011Q4

REPORT INFORMATION
  Report Type: 
  Country: None (occurrence: None)
  Receive Date: 20111227
  Receipt Date: 20111216
  Transmission Date: 20120403
  Serious: Yes (Hospitalization)
  Sender: FDA-Public Use
  Company Number: US-BAYER-2011-050496

PATIENT
  Age: 43 Year
  Sex: Female
  Weight: 68.027 kg

DRUGS (11)
  1. ACCOLATE [Concomitant]
  2. AMOXICILLIN [Concomitant]
  3. SUDAFED 12 HOUR [Concomitant]
  4. VITAMIN C [Concomitant]
     Dosage: UNK
     Dates: start: 20020101, end: 20030101
  5. YASMIN [Suspect]
     Dosage: UNK
     Dates: start: 20020101, end: 20030101
  6. ASPIRIN [Concomitant]
  7. BACTRIM [Concomitant]
  8. VENTOLIN [Concomitant]
  9. ADVAIR DISKUS 100/50 [Concomitant]
  10. ZYRTEC [Concomitant]
  11. PLAVIX [Concomitant]

REACTIONS (7)
  - CEREBRAL INFARCTION [None]
  - COAGULOPATHY [None]
  - TRANSVERSE SINUS THROMBOSIS [None]
  - CEREBROVASCULAR ACCIDENT [None]
  - MENTAL DISORDER [None]
  - INJURY [None]
  - PAIN [None]
